FAERS Safety Report 6498578-X (Version None)
Quarter: 2009Q4

REPORT INFORMATION
  Report Type: 
  Country: None (occurrence: None)
  Receive Date: 20091215
  Receipt Date: 20091209
  Transmission Date: 20100525
  Serious: No
  Sender: FDA-Public Use
  Company Number: US-B.I. PHARMACEUTICALS,INC./RIDGEFIELD-2009-BP-14187BP

PATIENT
  Age: 2 Year
  Sex: Male

DRUGS (12)
  1. CATAPRES-TTS-1 [Suspect]
     Indication: HYPERTENSION
     Dosage: 0.1 MG
     Route: 061
     Dates: start: 20091207, end: 20091208
  2. AMLODIPINE [Concomitant]
  3. BACTRIM [Concomitant]
  4. ENALAPRIL [Concomitant]
  5. ERGOCALCIFEROL [Concomitant]
  6. FLUCONAZOLE [Concomitant]
  7. FLORANEF [Concomitant]
  8. PREVACID [Concomitant]
  9. TACROLIMUS [Concomitant]
  10. ERSODIOL [Concomitant]
  11. GANCICLOVIR [Concomitant]
  12. METHYLPREDNISOLONE [Concomitant]

REACTIONS (1)
  - RASH GENERALISED [None]
